FAERS Safety Report 7609647-2 (Version None)
Quarter: 2011Q3

REPORT INFORMATION
  Report Type: 
  Country: None (occurrence: None)
  Receive Date: 20110714
  Receipt Date: 20110713
  Transmission Date: 20111222
  Serious: Yes (Other)
  Sender: FDA-Public Use
  Company Number: US-AMGEN-USASP2011035697

PATIENT
  Sex: Female

DRUGS (5)
  1. LISINOPRIL [Concomitant]
  2. CYCLOPHOSPHAMIDE [Concomitant]
  3. TAXOTERE [Concomitant]
  4. ADRIAMYCIN PFS [Concomitant]
  5. NEULASTA [Suspect]
     Indication: CHEMOTHERAPY
     Dates: start: 20110101, end: 20110101

REACTIONS (1)
  - BONE MARROW DISORDER [None]
